FAERS Safety Report 15780595 (Version 3)
Quarter: 2019Q1

REPORT INFORMATION
  Report Type: Spontaneous
  Country: JP (occurrence: JP)
  Receive Date: 20190102
  Receipt Date: 20190208
  Transmission Date: 20190417
  Serious: Yes (Hospitalization, Other)
  Sender: FDA-Public Use
  Company Number: JP-ASTRAZENECA-2018SF68830

PATIENT
  Age: 22070 Day
  Sex: Male
  Weight: 63 kg

DRUGS (23)
  1. TAGRISSO [Suspect]
     Active Substance: OSIMERTINIB
     Indication: NON-SMALL CELL LUNG CANCER
     Dosage: 80 MG, DAILY, AFTER BREAKFAST
     Route: 048
     Dates: start: 20181205, end: 20181210
  2. OXYCODONE HYDROCHLORIDE. [Concomitant]
     Active Substance: OXYCODONE HYDROCHLORIDE
     Indication: CANCER PAIN
     Dosage: FOR PAIN
     Route: 048
     Dates: start: 20181116
  3. RANMARK [Concomitant]
     Active Substance: DENOSUMAB
     Indication: METASTASES TO BONE
     Route: 058
     Dates: start: 20181122
  4. CELECOX [Concomitant]
     Active Substance: CELECOXIB
     Dosage: 100 MG, TWO TIMES A DAY, AFTER BREAKFAST AND EVENING MEAL
     Route: 048
  5. SENNOSIDE [Concomitant]
     Active Substance: SENNOSIDES
     Indication: CONSTIPATION
     Route: 048
  6. DECADRON [Concomitant]
     Active Substance: DEXAMETHASONE
     Indication: DIPLEGIA
     Dosage: 2 MG, EVERY DAY, AFTER BEAKFAST
     Route: 048
     Dates: start: 20181205, end: 20181207
  7. LOSARTAN. [Concomitant]
     Active Substance: LOSARTAN
     Dosage: 50 MG, EVERY DAY, AFTER BREAKFAST
     Route: 048
  8. METHYCOBAL [Concomitant]
     Active Substance: METHYLCOBALAMIN
     Dosage: 500 UG, THREE TIMES A DAY, AFTER EACH MEAL
     Route: 048
  9. LYRICA [Concomitant]
     Active Substance: PREGABALIN
     Dosage: 2 DF, EVERY DAY, AFTER EVENING MEAL
     Route: 048
  10. DECADRON [Concomitant]
     Active Substance: DEXAMETHASONE
     Indication: DIPLEGIA
     Dosage: 0.5 MG, EVERY DAY, AFTER BEAKFAST
     Route: 048
     Dates: start: 20181212, end: 20190108
  11. DENOTAS [Concomitant]
     Active Substance: CALCIUM CARBONATE\CHOLECALCIFEROL\MAGNESIUM CARBONATE
     Indication: PROPHYLAXIS
     Dosage: 2 DF, EVERY DAY, AFTER BREAKFAST
     Route: 048
     Dates: start: 20181122
  12. AMLODIPINE [Concomitant]
     Active Substance: AMLODIPINE BESYLATE
     Dosage: 5 MG, EVERY DAY, AFTER BREAKFAST
     Route: 048
  13. OXYCODONE HYDROCHLORIDE. [Concomitant]
     Active Substance: OXYCODONE HYDROCHLORIDE
     Indication: CANCER PAIN
     Route: 048
     Dates: start: 20181116
  14. FAMOTIDINE. [Concomitant]
     Active Substance: FAMOTIDINE
     Indication: PROPHYLAXIS AGAINST GASTROINTESTINAL ULCER
     Dosage: 20 MG, TWO TIMES A DAY, AFTER BREAKFAST AND EVENING MEAL
     Route: 048
     Dates: start: 20181127
  15. BAKTAR [Concomitant]
     Active Substance: SULFAMETHOXAZOLE\TRIMETHOPRIM
     Indication: PNEUMOCYSTIS JIROVECII PNEUMONIA
     Dosage: 1 DF, EVERY DAY, AFTER BREAKFAST
     Route: 048
     Dates: start: 20181120, end: 20190108
  16. JUVELA N [Concomitant]
     Active Substance: TOCOPHERYL NICOTINATE, D-.ALPHA.
     Dosage: 200 MG, THREE TIMES A DAY, AFTER EACH MEAL
     Route: 048
  17. GASCON [Concomitant]
     Active Substance: DIMETHICONE
     Indication: ABDOMINAL DISCOMFORT
     Dosage: 40 MG, THREE TIMES A DAY, AFTER EACH MEAL
     Route: 048
     Dates: start: 20181126
  18. PANVITAN [Concomitant]
     Dosage: 1 G, EVERY DAY, AFTER BREAKFAST
     Route: 048
  19. TAGRISSO [Suspect]
     Active Substance: OSIMERTINIB
     Indication: NON-SMALL CELL LUNG CANCER
     Dosage: 80 MG, DAILY, AFTER BREAKFAST
     Route: 048
     Dates: start: 20181212, end: 20181217
  20. DECADRON [Concomitant]
     Active Substance: DEXAMETHASONE
     Indication: DIPLEGIA
     Dosage: 1 MG, EVERY DAY, AFTER BEAKFAST
     Route: 048
     Dates: start: 20181208, end: 20181211
  21. MIYA-BM [Concomitant]
     Active Substance: CLOSTRIDIUM BUTYRICUM SPORES STRAIN M-55
     Indication: ABDOMINAL DISCOMFORT
     Dosage: 3 DF, THREE TIMES A DAY, AFTER EACH MEAL
     Route: 048
     Dates: start: 20181121
  22. KOLANTYL [Concomitant]
     Active Substance: DICYCLOMINE HYDROCHLORIDE
     Dosage: 3 G, THREE TIMES A DAY, AFTER EACH MEAL
     Route: 048
  23. MAGNESIUM OXIDE. [Concomitant]
     Active Substance: MAGNESIUM OXIDE
     Dosage: 500 MG, THREE TIMES A DAY, AFTER EACH MEAL, ADJUSTING THE DOSAGE AS REQUIRED
     Route: 048

REACTIONS (2)
  - Febrile neutropenia [Recovered/Resolved]
  - Neutrophil count decreased [Recovered/Resolved]

NARRATIVE: CASE EVENT DATE: 20181217
